FAERS Safety Report 12849976 (Version 2)
Quarter: 2016Q4

REPORT INFORMATION
  Report Type: Spontaneous
  Country: US (occurrence: US)
  Receive Date: 20161014
  Receipt Date: 20161020
  Transmission Date: 20170207
  Serious: Yes (Other)
  Sender: FDA-Public Use
  Company Number: US-JNJFOC-20151113312

PATIENT
  Age: 38 Year
  Sex: Male

DRUGS (3)
  1. DOXORUBICIN HYDROCHLORIDE. [Suspect]
     Active Substance: DOXORUBICIN HYDROCHLORIDE
     Indication: MYXOFIBROSARCOMA
     Route: 042
  2. MESNA. [Concomitant]
     Active Substance: MESNA
     Indication: MYXOFIBROSARCOMA
     Route: 065
  3. IFOSFAMIDE. [Concomitant]
     Active Substance: IFOSFAMIDE
     Indication: MYXOFIBROSARCOMA
     Route: 065

REACTIONS (6)
  - Off label use [Unknown]
  - Pancytopenia [Unknown]
  - Pericardial effusion [Unknown]
  - Febrile neutropenia [Unknown]
  - Product use issue [Unknown]
  - Pleural effusion [Unknown]
